FAERS Safety Report 4877947-5 (Version None)
Quarter: 2006Q1

REPORT INFORMATION
  Report Type: 
  Country: None (occurrence: None)
  Receive Date: 20060110
  Receipt Date: 20051223
  Transmission Date: 20060701
  Serious: Yes (Death)
  Sender: FDA-Public Use
  Company Number: 220819

PATIENT
  Age: 65 Year
  Sex: Male
  Weight: 85 kg

DRUGS (3)
  1. AVASTIN [Suspect]
     Indication: COLORECTAL CANCER METASTATIC
     Dates: start: 20050930
  2. CAPECITABINE(CAPECITABINE) [Suspect]
     Indication: COLORECTAL CANCER METASTATIC
     Dates: start: 20050930
  3. IRINOTECAN HCL [Suspect]
     Indication: COLORECTAL CANCER
     Dates: start: 20050930

REACTIONS (1)
  - DISEASE PROGRESSION [None]
